FAERS Safety Report 6246226-6 (Version None)
Quarter: 2009Q2

REPORT INFORMATION
  Report Type: 
  Country: None (occurrence: None)
  Receive Date: 20090626
  Receipt Date: 20090622
  Transmission Date: 20091009
  Serious: Yes (Other)
  Sender: FDA-Public Use
  Company Number: AU-JNJFOC-20090608312

PATIENT

DRUGS (6)
  1. PREZISTA [Suspect]
     Indication: DRUG USE FOR UNKNOWN INDICATION
     Route: 048
  2. INTELENCE [Suspect]
     Indication: DRUG USE FOR UNKNOWN INDICATION
     Route: 048
  3. RALTEGRAVIR [Interacting]
     Indication: DRUG USE FOR UNKNOWN INDICATION
  4. PHENYTOIN [Interacting]
     Indication: DRUG USE FOR UNKNOWN INDICATION
  5. RITONAVIR [Suspect]
     Indication: DRUG USE FOR UNKNOWN INDICATION
  6. LAMIVUDINE [Concomitant]

REACTIONS (3)
  - ANTICONVULSANT DRUG LEVEL DECREASED [None]
  - CONVULSION [None]
  - DRUG INTERACTION [None]
